FAERS Safety Report 6753696-3 (Version None)
Quarter: 2010Q2

REPORT INFORMATION
  Report Type: 
  Country: None (occurrence: None)
  Receive Date: 20100603
  Receipt Date: 20100525
  Transmission Date: 20101027
  Serious: Yes (Hospitalization, Other)
  Sender: FDA-Public Use
  Company Number: FR-BRISTOL-MYERS SQUIBB COMPANY-15126741

PATIENT
  Age: 31 Year
  Sex: Female

DRUGS (3)
  1. SUSTIVA [Suspect]
     Indication: HIV INFECTION
     Dosage: 1 DOSAGEFORM = 1 CAPSULE
     Route: 048
     Dates: start: 20070817, end: 20091202
  2. TRUVADA [Suspect]
     Indication: HIV INFECTION
     Dates: start: 20070817
  3. KALETRA [Suspect]
     Indication: HIV INFECTION

REACTIONS (4)
  - ABORTION INDUCED [None]
  - BARTHOLINITIS [None]
  - PREGNANCY [None]
  - PYELONEPHRITIS [None]
